FAERS Safety Report 12748969 (Version 2)
Quarter: 2016Q4

REPORT INFORMATION
  Report Type: Spontaneous
  Country: US (occurrence: US)
  Receive Date: 20160915
  Receipt Date: 20161020
  Transmission Date: 20170207
  Serious: Yes (Hospitalization)
  Sender: FDA-Public Use
  Company Number: US-FERRINGPH-2016FE05044

PATIENT

DRUGS (10)
  1. ALLOPURINOL. [Concomitant]
     Active Substance: ALLOPURINOL
     Indication: PRODUCT USED FOR UNKNOWN INDICATION
     Dosage: 10 MG, UNK
     Route: 065
  2. AMLODIPINE BESILATE [Concomitant]
     Active Substance: AMLODIPINE BESYLATE
     Indication: PRODUCT USED FOR UNKNOWN INDICATION
     Dosage: 10 MG, UNK
     Route: 065
  3. HCTZ [Concomitant]
     Active Substance: HYDROCHLOROTHIAZIDE
     Indication: PRODUCT USED FOR UNKNOWN INDICATION
     Dosage: 12.5 MG, UNK
     Route: 065
  4. METOPROLOL SUCCINATE. [Concomitant]
     Active Substance: METOPROLOL SUCCINATE
     Indication: PRODUCT USED FOR UNKNOWN INDICATION
     Dosage: 100 MG, UNK
     Route: 065
  5. AMOXICILLIN. [Concomitant]
     Active Substance: AMOXICILLIN
     Indication: EAR INFECTION
     Route: 065
  6. FIRMAGON [Suspect]
     Active Substance: DEGARELIX ACETATE
     Dosage: 80 MG, MONTHLY
     Route: 058
     Dates: start: 201603
  7. ACIPHEX [Concomitant]
     Active Substance: RABEPRAZOLE SODIUM
     Indication: PRODUCT USED FOR UNKNOWN INDICATION
     Dosage: 20 MG, UNK
     Route: 065
  8. CRESTOR [Concomitant]
     Active Substance: ROSUVASTATIN CALCIUM
     Indication: PRODUCT USED FOR UNKNOWN INDICATION
     Dosage: 40 MG, UNK
     Route: 065
  9. LISINOPRIL. [Concomitant]
     Active Substance: LISINOPRIL
     Indication: PRODUCT USED FOR UNKNOWN INDICATION
     Dosage: 10 MG, UNK
     Route: 065
  10. FIRMAGON [Suspect]
     Active Substance: DEGARELIX ACETATE
     Indication: PROSTATE CANCER
     Dosage: UNK, ONCE/SINGLE
     Route: 058
     Dates: start: 201602

REACTIONS (7)
  - Injection site abscess [Not Recovered/Not Resolved]
  - Abdominal abscess [Recovered/Resolved]
  - Injection site nodule [Unknown]
  - Injection site swelling [Unknown]
  - Injection site pain [Unknown]
  - Wrong technique in product usage process [Unknown]
  - Injection site erythema [Unknown]

NARRATIVE: CASE EVENT DATE: 201607
